FAERS Safety Report 4884991-0 (Version None)
Quarter: 2006Q1

REPORT INFORMATION
  Report Type: 
  Country: None (occurrence: None)
  Receive Date: 20060119
  Receipt Date: 20050218
  Transmission Date: 20060701
  Serious: Yes (Hospitalization, Other)
  Sender: FDA-Public Use
  Company Number: US-MERCK-0502USA02717

PATIENT
  Age: 74 Year
  Sex: Male
  Weight: 68 kg

DRUGS (8)
  1. VIOXX [Suspect]
     Indication: PAIN
     Route: 048
     Dates: start: 20011108, end: 20040813
  2. NORVASC [Concomitant]
     Route: 065
  3. LIPITOR [Concomitant]
     Route: 065
  4. NASONEX [Concomitant]
     Route: 065
  5. PREVACID [Concomitant]
     Route: 065
  6. ATENOLOL [Concomitant]
     Route: 065
  7. IMIPRAMINE HYDROCHLORIDE [Concomitant]
     Route: 065
  8. METROCREAM [Concomitant]
     Route: 065

REACTIONS (5)
  - BALANCE DISORDER [None]
  - CEREBROVASCULAR ACCIDENT [None]
  - GAIT DISTURBANCE [None]
  - LIMB CRUSHING INJURY [None]
  - VISUAL DISTURBANCE [None]
